FAERS Safety Report 5819251-4 (Version None)
Quarter: 2008Q3

REPORT INFORMATION
  Report Type: 
  Country: None (occurrence: None)
  Receive Date: 20080723
  Receipt Date: 20080714
  Transmission Date: 20090109
  Serious: Yes (Hospitalization, Other)
  Sender: FDA-Public Use
  Company Number: US-BAYER-200812032BCC

PATIENT
  Age: 72 Year
  Sex: Female
  Weight: 56 kg

DRUGS (5)
  1. ASPIRIN [Suspect]
     Indication: ISCHAEMIC HEART DISEASE PROPHYLAXIS
     Dosage: TOTAL DAILY DOSE: 81 MG  UNIT DOSE: 81 MG
     Route: 048
     Dates: start: 20060901, end: 20080101
  2. ATENOLOL [Concomitant]
  3. OMEPRAZOLE [Concomitant]
  4. LORAZEPAM [Concomitant]
     Route: 048
  5. LIPITOR [Concomitant]

REACTIONS (3)
  - DIVERTICULITIS [None]
  - MEDICATION RESIDUE [None]
  - RECTAL HAEMORRHAGE [None]
